FAERS Safety Report 6378656-6 (Version None)
Quarter: 2009Q3

REPORT INFORMATION
  Report Type: 
  Country: None (occurrence: None)
  Receive Date: 20090928
  Receipt Date: 20090917
  Transmission Date: 20100115
  Serious: Yes (Hospitalization)
  Sender: FDA-Public Use
  Company Number: JP-AMGEN-US365728

PATIENT
  Age: 51 Year
  Sex: Male

DRUGS (4)
  1. ENBREL [Suspect]
     Indication: RHEUMATOID ARTHRITIS
     Route: 058
     Dates: start: 20080901, end: 20090901
  2. METHOTREXATE [Concomitant]
     Route: 065
  3. NSAID'S [Concomitant]
     Route: 065
  4. UNSPECIFIED STEROIDS [Concomitant]
     Route: 065

REACTIONS (1)
  - LEUKOENCEPHALOPATHY [None]
